FAERS Safety Report 13758361 (Version 4)
Quarter: 2019Q2

REPORT INFORMATION
  Report Type: Spontaneous
  Country: US (occurrence: US)
  Receive Date: 20170717
  Receipt Date: 20190409
  Transmission Date: 20190711
  Serious: No
  Sender: FDA-Public Use
  Company Number: US-PFIZER INC-2017305539

PATIENT
  Age: 63 Year
  Sex: Male
  Weight: 82 kg

DRUGS (7)
  1. METHOTREXATE. [Concomitant]
     Active Substance: METHOTREXATE
     Indication: RHEUMATOID ARTHRITIS
     Dosage: 12.5 MG, WEEKLY (5 PILLS, TAKES ON SUNDAYS)/ (5 TABS AT ONE TIME PER WEEK)
     Route: 048
     Dates: start: 2014
  2. XELJANZ XR [Suspect]
     Active Substance: TOFACITINIB CITRATE
     Indication: RHEUMATOID ARTHRITIS
     Dosage: 11 MG, 1X/DAY
     Route: 048
     Dates: start: 2015
  3. FOLIC ACID. [Concomitant]
     Active Substance: FOLIC ACID
     Dosage: 2 MG, 1X/DAY (2 TABLETS, ABOUT 18 MONTHS AGO) (2 PER DAY)
     Route: 048
     Dates: start: 2015
  4. LEVOTHYROXINE. [Concomitant]
     Active Substance: LEVOTHYROXINE
     Indication: HYPOTHYROIDISM
     Dosage: 0.175 UG, 1X/DAY (2 TO 3 YEARS AGO)
     Route: 048
     Dates: start: 2016
  5. LISINOPRIL. [Concomitant]
     Active Substance: LISINOPRIL
     Indication: HYPERTENSION
     Dosage: 10 MG, 1X/DAY (ABOUT 2-3 YEARS AGO)
     Route: 048
     Dates: start: 2016
  6. MELOXICAM. [Concomitant]
     Active Substance: MELOXICAM
     Dosage: 15 MG, 1X/DAY (ABOUT 2-3 YEARS AGO)
     Route: 048
     Dates: start: 2014
  7. XELJANZ XR [Suspect]
     Active Substance: TOFACITINIB CITRATE
     Dosage: 11 MG, 1X/DAY
     Route: 048
     Dates: start: 2016

REACTIONS (4)
  - Bronchitis [Recovered/Resolved]
  - Sneezing [Not Recovered/Not Resolved]
  - Snoring [Recovered/Resolved]
  - Oropharyngeal pain [Recovered/Resolved]

NARRATIVE: CASE EVENT DATE: 201802
